FAERS Safety Report 17065602 (Version 1)
Quarter: 2019Q4

REPORT INFORMATION
  Report Type: Report from Study
  Country: GB (occurrence: GB)
  Receive Date: 20191122
  Receipt Date: 20191122
  Transmission Date: 20200122
  Serious: Yes (Hospitalization)
  Sender: FDA-Public Use
  Company Number: GB-ROCHE-2469302

PATIENT
  Age: 63 Year
  Sex: Female

DRUGS (31)
  1. LETROZOLE. [Suspect]
     Active Substance: LETROZOLE
     Indication: BREAST CANCER METASTATIC
     Route: 048
     Dates: start: 20180119, end: 20180126
  2. CHLORPHENAMINE [Concomitant]
     Active Substance: CHLORPHENIRAMINE MALEATE
     Route: 042
     Dates: start: 20180202, end: 20180518
  3. HYDROXOCOBALAMIN [Concomitant]
     Active Substance: HYDROXOCOBALAMIN
     Dosage: HYDROXOCOBALAMIN?1MG/1ML
     Route: 042
     Dates: start: 20020115
  4. PIRITON [Concomitant]
     Active Substance: CHLORPHENIRAMINE MALEATE
     Dosage: PRN (AS?NEEDED)
     Route: 048
     Dates: start: 20180125
  5. TRASTUZUMAB. [Suspect]
     Active Substance: TRASTUZUMAB
     Indication: BREAST CANCER
  6. PACLITAXEL. [Suspect]
     Active Substance: PACLITAXEL
     Indication: BREAST CANCER METASTATIC
  7. AMLODIPINE [Concomitant]
     Active Substance: AMLODIPINE BESYLATE
     Route: 048
     Dates: end: 20180301
  8. METOCLOPRAMIDE. [Concomitant]
     Active Substance: METOCLOPRAMIDE
     Dosage: PRN (AS?NEEDED)
     Route: 048
     Dates: start: 20180202, end: 20180518
  9. ZEROBASE [PARAFFIN] [Concomitant]
     Indication: DRY SKIN
     Dosage: PRN (AS?NEEDED)
     Route: 065
  10. TRASTUZUMAB. [Suspect]
     Active Substance: TRASTUZUMAB
     Indication: BREAST CANCER METASTATIC
     Route: 058
     Dates: start: 20180202, end: 20180827
  11. ADCAL D3 [Concomitant]
     Active Substance: CALCIUM CARBONATE\CHOLECALCIFEROL
     Route: 048
     Dates: start: 20140127
  12. RANITIDINE. [Concomitant]
     Active Substance: RANITIDINE
     Route: 042
     Dates: start: 20180202, end: 20180518
  13. DOUBLEBASE [Concomitant]
     Active Substance: ISOPROPYL MYRISTATE\PARAFFIN
     Route: 065
  14. CLOTRIMAZOLE. [Concomitant]
     Active Substance: CLOTRIMAZOLE
     Route: 061
  15. OXYCODONE [Concomitant]
     Active Substance: OXYCODONE
  16. LETROZOLE. [Suspect]
     Active Substance: LETROZOLE
     Indication: BREAST CANCER
     Route: 048
     Dates: start: 20180525, end: 20181011
  17. DOXAZOSIN [Concomitant]
     Active Substance: DOXAZOSIN MESYLATE
     Route: 048
     Dates: start: 20040816
  18. COCODAMOL [Concomitant]
     Active Substance: ACETAMINOPHEN\CODEINE PHOSPHATE
     Dosage: PRN (AS?NEEDED)
     Route: 048
     Dates: start: 20180302
  19. FLUCONAZOLE. [Concomitant]
     Active Substance: FLUCONAZOLE
     Route: 048
     Dates: start: 20180125, end: 20180128
  20. BENZYDAMINE [Concomitant]
     Active Substance: BENZYDAMINE
     Route: 065
     Dates: start: 20180414
  21. TRASTUZUMAB EMTANSINE [Suspect]
     Active Substance: ADO-TRASTUZUMAB EMTANSINE
     Indication: BREAST CANCER METASTATIC
  22. TERBUTALINE [Concomitant]
     Active Substance: TERBUTALINE
     Route: 065
     Dates: start: 20030108
  23. BENDROFLUMETHIAZIDE [Concomitant]
     Active Substance: BENDROFLUMETHIAZIDE
     Route: 048
     Dates: start: 20030114
  24. PENTASA [Concomitant]
     Active Substance: MESALAMINE
     Route: 065
     Dates: start: 20131217, end: 20180730
  25. OMEPRAZOLE. [Concomitant]
     Active Substance: OMEPRAZOLE
     Route: 065
     Dates: start: 20091014
  26. FOLIC ACID. [Concomitant]
     Active Substance: FOLIC ACID
     Route: 065
     Dates: start: 20030207
  27. DEXAMETHASONE. [Concomitant]
     Active Substance: DEXAMETHASONE
     Route: 042
     Dates: start: 20180202, end: 20180518
  28. TRASTUZUMAB EMTANSINE [Suspect]
     Active Substance: ADO-TRASTUZUMAB EMTANSINE
     Indication: BREAST CANCER
     Route: 042
     Dates: start: 20191019
  29. PACLITAXEL. [Suspect]
     Active Substance: PACLITAXEL
     Indication: BREAST CANCER
     Route: 042
     Dates: start: 20180202, end: 20180518
  30. QUININE SULPHATE [Concomitant]
     Active Substance: QUININE SULFATE
     Route: 048
     Dates: start: 20040219, end: 20180225
  31. OTHER EMOLLIENTS AND PROTECTIVES [Concomitant]
     Active Substance: UNSPECIFIED INGREDIENT
     Dosage: PRN (AS?NEEDED)
     Route: 061
     Dates: start: 20181109

REACTIONS (2)
  - Infection [Not Recovered/Not Resolved]
  - Gastrointestinal haemorrhage [Not Recovered/Not Resolved]

NARRATIVE: CASE EVENT DATE: 20191015
